FAERS Safety Report 14400503 (Version 1)
Quarter: 2018Q1

REPORT INFORMATION
  Report Type: Spontaneous
  Country: HR (occurrence: HR)
  Receive Date: 20180117
  Receipt Date: 20180117
  Transmission Date: 20180509
  Serious: Yes (Other)
  Sender: FDA-Public Use
  Company Number: HR-ROCHE-2056678

PATIENT
  Age: 29 Year
  Sex: Male

DRUGS (1)
  1. RIVOTRIL [Suspect]
     Active Substance: CLONAZEPAM
     Indication: PRODUCT USED FOR UNKNOWN INDICATION
     Route: 048
     Dates: start: 20170930, end: 20170930

REACTIONS (3)
  - Drug abuse [Unknown]
  - Sedation [Unknown]
  - Somnolence [Unknown]

NARRATIVE: CASE EVENT DATE: 20170930
